FAERS Safety Report 7898885-X (Version None)
Quarter: 2011Q4

REPORT INFORMATION
  Report Type: 
  Country: None (occurrence: None)
  Receive Date: 20111107
  Receipt Date: 20110526
  Transmission Date: 20120403
  Serious: No
  Sender: FDA-Public Use
  Company Number: US-BAYER-2011-076766

PATIENT
  Age: 40 Year
  Sex: Male

DRUGS (3)
  1. ANTIBIOTICS [Concomitant]
  2. RID 1-2-3 SYSTEM [Suspect]
     Dosage: 1 DF, UNK
     Route: 061
     Dates: start: 20110526
  3. STEROID ANTIBACTERIALS [Concomitant]

REACTIONS (4)
  - FORMICATION [None]
  - INSOMNIA [None]
  - PRURITUS GENITAL [None]
  - SKIN DISCOLOURATION [None]
